FAERS Safety Report 5740842-3 (Version None)
Quarter: 2008Q2

REPORT INFORMATION
  Report Type: 
  Country: None (occurrence: None)
  Receive Date: 20080516
  Receipt Date: 20080509
  Transmission Date: 20081010
  Serious: Yes (Death)
  Sender: FDA-Public Use
  Company Number: GB-PFIZER INC-2008000817

PATIENT
  Age: 44 Year
  Sex: Female

DRUGS (4)
  1. CHANTIX [Suspect]
     Route: 048
  2. ALL OTHER THERAPEUTIC PRODUCTS [Concomitant]
  3. SUMATRIPTAN SUCCINATE [Concomitant]
     Indication: MIGRAINE
  4. VERAPAMIL [Concomitant]
     Dates: start: 20070830

REACTIONS (2)
  - CEREBRAL HAEMORRHAGE [None]
  - HYPERTENSION [None]
